FAERS Safety Report 11129481 (Version 1)
Quarter: 2015Q2

REPORT INFORMATION
  Report Type: Spontaneous
  Country: US (occurrence: US)
  Receive Date: 20150521
  Receipt Date: 20150521
  Transmission Date: 20150821
  Serious: Yes (Disabling, Other)
  Sender: FDA-Public Use
  Company Number: US-GLENMARK GENERICS (EUROPE) LTD-2015GMK017022

PATIENT
  Age: 61 Year
  Sex: Female

DRUGS (6)
  1. LEVODOPA [Suspect]
     Active Substance: LEVODOPA
     Dosage: 600 MG, UNK
  2. PRAMIPEXOLE [Suspect]
     Active Substance: PRAMIPEXOLE
     Dosage: 3.0 MG, QD
  3. PRAMIPEXOLE [Suspect]
     Active Substance: PRAMIPEXOLE
     Dosage: 0.25 MG, QD
  4. LEVODOPA [Suspect]
     Active Substance: LEVODOPA
     Indication: PARKINSON^S DISEASE
     Dosage: 300 MG, QD
  5. PRAMIPEXOLE [Suspect]
     Active Substance: PRAMIPEXOLE
     Indication: PARKINSON^S DISEASE
     Dosage: 4.5 MG, QD
  6. LEVODOPA [Suspect]
     Active Substance: LEVODOPA
     Dosage: 1100 MG, QD

REACTIONS (15)
  - Depression [Recovering/Resolving]
  - Crying [Unknown]
  - Resting tremor [Unknown]
  - Muscle rigidity [Unknown]
  - Orthostatic hypotension [Recovered/Resolved]
  - Agitation [Recovering/Resolving]
  - Insomnia [Unknown]
  - Anxiety [Recovering/Resolving]
  - Dystonia [Unknown]
  - Fatigue [Unknown]
  - Impulse-control disorder [Not Recovered/Not Resolved]
  - Drug withdrawal syndrome [Not Recovered/Not Resolved]
  - Restless legs syndrome [Unknown]
  - Bradykinesia [Unknown]
  - Musculoskeletal pain [Unknown]
